FAERS Safety Report 8775258 (Version 2)
Quarter: 2014Q2

REPORT INFORMATION
  Report Type: Report from Study
  Country: CA (occurrence: CA)
  Receive Date: 20120910
  Receipt Date: 20140402
  Transmission Date: 20141212
  Serious: Yes (Other)
  Sender: FDA-Public Use
  Company Number: CA-ROCHE-789854

PATIENT
  Age: 55 Year
  Sex: Female
  Weight: 77.18 kg

DRUGS (8)
  1. RITUXAN [Suspect]
     Indication: RHEUMATOID ARTHRITIS
     Dosage: FREQUENCY: DAY 1 + 15
     Route: 042
  2. RITUXAN [Suspect]
     Route: 042
  3. MEDROL [Concomitant]
  4. FOLIC ACID [Concomitant]
     Indication: RHEUMATOID ARTHRITIS
     Route: 048
  5. MICARDIS PLUS [Concomitant]
     Indication: HYPOTENSION
     Route: 048
  6. ESTRACE [Concomitant]
     Indication: MENOPAUSE
     Route: 048
  7. PROMETRIUM [Concomitant]
     Indication: MENOPAUSE
     Route: 048
  8. METHOTREXATE [Concomitant]
     Indication: RHEUMATOID ARTHRITIS
     Route: 065

REACTIONS (3)
  - Uterine polyp [Unknown]
  - Vaginal haemorrhage [Recovered/Resolved]
  - Fibromyalgia [Not Recovered/Not Resolved]
